FAERS Safety Report 22596728 (Version 1)
Quarter: 2023Q2

REPORT INFORMATION
  Report Type: Spontaneous
  Country: US (occurrence: US)
  Receive Date: 20230613
  Receipt Date: 20230613
  Transmission Date: 20230722
  Serious: No
  Sender: FDA-Public Use
  Company Number: US-ALKERMES INC.-ALK-2023-002304

PATIENT
  Sex: Male
  Weight: 108.84 kg

DRUGS (2)
  1. VIVITROL [Suspect]
     Active Substance: NALTREXONE
     Indication: Drug dependence
     Dosage: 380 MILLIGRAM, QMO
     Route: 030
     Dates: start: 20230418
  2. VIVITROL [Suspect]
     Active Substance: NALTREXONE
     Indication: Substance dependence

REACTIONS (2)
  - Therapeutic response shortened [Unknown]
  - Off label use [Not Recovered/Not Resolved]
